FAERS Safety Report 6563981-6 (Version None)
Quarter: 2010Q1

REPORT INFORMATION
  Report Type: 
  Country: None (occurrence: None)
  Receive Date: 20100131
  Receipt Date: 20100120
  Transmission Date: 20100710
  Serious: Yes (Life-Threatening, Hospitalization)
  Sender: FDA-Public Use
  Company Number: US-JNJFOC-20100108584

PATIENT
  Sex: Female
  Weight: 54.43 kg

DRUGS (9)
  1. REMICADE [Suspect]
     Indication: CROHN'S DISEASE
     Route: 042
  2. REMICADE [Suspect]
     Route: 042
  3. REMICADE [Suspect]
     Route: 042
  4. REMICADE [Suspect]
     Route: 042
  5. REMICADE [Suspect]
     Dosage: 3 INFUSIONS PRIOR TO BASELINE ON UNSPECIFIED DATES
     Route: 042
  6. MULTIPLE VITAMINS [Concomitant]
  7. VITAMIN B-12 [Concomitant]
  8. VITAMIN C [Concomitant]
  9. IMODIUM [Concomitant]

REACTIONS (1)
  - COLON CANCER [None]
